FAERS Safety Report 8887693 (Version 1)
Quarter: 2012Q4

REPORT INFORMATION
  Report Type: Report from Study
  Country: JP (occurrence: JP)
  Receive Date: 20121106
  Receipt Date: 20121106
  Transmission Date: 20130627
  Serious: Yes (Other)
  Sender: FDA-Public Use
  Company Number: JP-VERTEX PHARMACEUTICAL INC.-AE-2012-004789

PATIENT
  Age: 62 Year
  Sex: Male

DRUGS (8)
  1. TELAPREVIR [Suspect]
     Indication: CHRONIC HEPATITIS C
     Dosage: 2250 mg, qd
     Route: 048
     Dates: start: 20120306, end: 20120322
  2. PEGINTERFERON ALFA-2B [Suspect]
     Indication: CHRONIC HEPATITIS C
     Dosage: 0.9 ?g/kg, qw
     Route: 051
     Dates: start: 20120306, end: 20120313
  3. RIBAVIRIN [Suspect]
     Indication: CHRONIC HEPATITIS C
     Dosage: 800 mg, qd
     Route: 048
     Dates: start: 20120306, end: 20120322
  4. ADONA [Concomitant]
     Dosage: 100 mg, qd
     Route: 042
     Dates: start: 20120307, end: 20120308
  5. TRANSAMIN [Concomitant]
     Dosage: 1 g, qd
     Route: 042
     Dates: start: 20120307, end: 20120308
  6. ATROPINE                           /00002802/ [Concomitant]
     Dosage: 0.5 mg, qd
     Route: 042
     Dates: start: 20120307, end: 20120307
  7. RASENAZOLIN [Concomitant]
     Dosage: 2 g, qd
     Route: 042
     Dates: start: 20120307, end: 20120307
  8. ATARAX-P                           /00058402/ [Concomitant]
     Dosage: 25 mg, qd
     Route: 042
     Dates: start: 20120307, end: 20120307

REACTIONS (5)
  - Depression [Not Recovered/Not Resolved]
  - Arthralgia [None]
  - Decreased appetite [None]
  - Platelet count decreased [None]
  - Malaise [None]
